FAERS Safety Report 16437593 (Version 2)
Quarter: 2019Q2

REPORT INFORMATION
  Report Type: Spontaneous
  Country: AU (occurrence: AU)
  Receive Date: 20190615
  Receipt Date: 20190621
  Transmission Date: 20190711
  Serious: Yes (Other)
  Sender: FDA-Public Use
  Company Number: AU-IPSEN BIOPHARMACEUTICALS, INC.-2019-09807

PATIENT
  Age: 53 Year
  Sex: Female

DRUGS (5)
  1. DYSPORT [Suspect]
     Active Substance: ABOBOTULINUMTOXINA
     Indication: SKIN WRINKLING
     Dosage: 50 UNITS (PLATYSMA BAND (35 UNITS), JAWLINE (15 UNITS)
     Route: 065
     Dates: start: 20190110, end: 20190110
  2. RESTYLANE LYFT [Suspect]
     Active Substance: HYALURONIC ACID
     Indication: SKIN COSMETIC PROCEDURE
  3. DYSPORT [Suspect]
     Active Substance: ABOBOTULINUMTOXINA
     Indication: SKIN WRINKLING
  4. DYSPORT [Suspect]
     Active Substance: ABOBOTULINUMTOXINA
     Indication: SKIN WRINKLING
  5. DYSPORT [Suspect]
     Active Substance: ABOBOTULINUMTOXINA
     Indication: OFF LABEL USE

REACTIONS (14)
  - Musculoskeletal stiffness [Unknown]
  - Oesophageal discomfort [Not Recovered/Not Resolved]
  - Cough [Not Recovered/Not Resolved]
  - Malaise [Unknown]
  - Mastication disorder [Unknown]
  - Discomfort [Unknown]
  - Lower respiratory tract infection [Not Recovered/Not Resolved]
  - Dysphagia [Unknown]
  - Dyspnoea [Unknown]
  - Hypokinesia [Unknown]
  - Influenza like illness [Unknown]
  - Asthenia [Unknown]
  - Off label use [Unknown]
  - Off label use [Unknown]

NARRATIVE: CASE EVENT DATE: 20190110
